FAERS Safety Report 15762970 (Version 2)
Quarter: 2019Q1

REPORT INFORMATION
  Report Type: Report from Study
  Country: US (occurrence: US)
  Receive Date: 20181226
  Receipt Date: 20190322
  Transmission Date: 20190417
  Serious: Yes (Hospitalization)
  Sender: FDA-Public Use
  Company Number: US-ACTELION-A-NJ2018-167614

PATIENT
  Sex: Female

DRUGS (3)
  1. OPSUMIT [Suspect]
     Active Substance: MACITENTAN
     Indication: PULMONARY ARTERIAL HYPERTENSION
     Dosage: 10 MG, QD
     Route: 048
     Dates: start: 20180116
  2. ADCIRCA [Suspect]
     Active Substance: TADALAFIL
     Indication: PRODUCT USED FOR UNKNOWN INDICATION
     Dosage: UNK
     Route: 065
  3. DIPHENHYDRAMINE\HYDROCORTISONE\LIDOCAINE\NYSTATIN\TETRACYCLINE (MAGIC MOUTHWASH) [Suspect]
     Active Substance: DIPHENHYDRAMINE\HYDROCORTISONE\LIDOCAINE\NYSTATIN\TETRACYCLINE
     Indication: PRODUCT USED FOR UNKNOWN INDICATION
     Dosage: 5 MG, Q4HRS
     Route: 048
     Dates: start: 201811, end: 20181128

REACTIONS (8)
  - Oropharyngeal pain [Unknown]
  - Condition aggravated [Recovered/Resolved]
  - Hypoaesthesia oral [Unknown]
  - Wheezing [Unknown]
  - Scleroderma [Unknown]
  - Calcinosis [Unknown]
  - Dysphagia [Unknown]
  - Hypotension [Not Recovered/Not Resolved]
